FAERS Safety Report 4909348-5 (Version None)
Quarter: 2006Q1

REPORT INFORMATION
  Report Type: 
  Country: None (occurrence: None)
  Receive Date: 20060213
  Receipt Date: 20051206
  Transmission Date: 20060701
  Serious: Yes (Life-Threatening, Hospitalization)
  Sender: FDA-Public Use
  Company Number: FR-GLAXOSMITHKLINE-B0402768A

PATIENT
  Age: 52 Year
  Sex: Male

DRUGS (9)
  1. LAMICTAL [Suspect]
     Indication: HEAD INJURY
     Route: 048
     Dates: start: 20050907, end: 20051003
  2. CLAMOXYL [Suspect]
     Indication: SPUTUM PURULENT
     Route: 065
     Dates: start: 20051012, end: 20051014
  3. IMOVANE [Suspect]
     Dosage: 7.5MG PER DAY
     Route: 048
     Dates: end: 20051003
  4. CIFLOX [Suspect]
     Indication: HEAD INJURY
     Route: 048
     Dates: start: 20050925, end: 20050930
  5. DEPAKENE [Suspect]
     Indication: HEAD INJURY
     Dosage: 1000MG TWICE PER DAY
     Route: 048
     Dates: end: 20050911
  6. STABLON [Suspect]
     Route: 048
  7. IOBITRIDOL [Suspect]
     Dosage: 120ML PER DAY
     Route: 042
     Dates: start: 20051003, end: 20051003
  8. FOSAMAX [Concomitant]
     Dosage: 1TAB WEEKLY
     Route: 065
  9. OROCAL [Concomitant]
     Dosage: 3UNIT TWICE PER DAY
     Route: 065

REACTIONS (16)
  - CHEILITIS [None]
  - CHILLS [None]
  - COUGH [None]
  - DYSPHAGIA [None]
  - EOSINOPHILIA [None]
  - FACE OEDEMA [None]
  - HYPERSENSITIVITY [None]
  - LIP DISORDER [None]
  - OEDEMA [None]
  - ORAL SOFT TISSUE DISORDER [None]
  - OXYGEN SATURATION DECREASED [None]
  - PRURITUS [None]
  - PYREXIA [None]
  - RASH MACULO-PAPULAR [None]
  - RASH MORBILLIFORM [None]
  - SKIN EXFOLIATION [None]
